FAERS Safety Report 4925715-8 (Version None)
Quarter: 2006Q1

REPORT INFORMATION
  Report Type: 
  Country: None (occurrence: None)
  Receive Date: 20060224
  Receipt Date: 20060224
  Transmission Date: 20060701
  Serious: Yes (Hospitalization)
  Sender: FDA-Public Use
  Company Number: None

PATIENT
  Age: 61 Year
  Sex: Female
  Weight: 155.5 kg

DRUGS (2)
  1. HEPARIN 300 UNITS [Suspect]
     Indication: INTRAVENOUS CATHETER MANAGEMENT
     Dosage: 300 UNITS BID AND PN' IV
     Route: 042
     Dates: start: 20051106, end: 20051118
  2. ENOXAPARIN 30 MG AVENTIS [Suspect]
     Indication: THROMBOSIS PROPHYLAXIS
     Dosage: 30 MG Q24 HOURS SQ
     Route: 058
     Dates: start: 20051112, end: 20051116

REACTIONS (1)
  - HEPARIN-INDUCED THROMBOCYTOPENIA [None]
